FAERS Safety Report 17992883 (Version 1)
Quarter: 2020Q3

REPORT INFORMATION
  Report Type: Spontaneous
  Country: US (occurrence: US)
  Receive Date: 20200707
  Receipt Date: 20200707
  Transmission Date: 20201103
  Serious: Yes (Death, Life-Threatening, Other)
  Sender: FDA-Public Use
  Company Number: US-LUNDBECK-DKLU3018173

PATIENT
  Age: 83 Year
  Sex: Male

DRUGS (18)
  1. NORTHERA [Suspect]
     Active Substance: DROXIDOPA
     Dosage: DAY 3?4
     Route: 065
  2. NORTHERA [Suspect]
     Active Substance: DROXIDOPA
     Dosage: DAY 7?8
     Route: 065
  3. NORTHERA [Suspect]
     Active Substance: DROXIDOPA
     Dosage: DAY 9?10
     Route: 065
  4. NORTHERA [Suspect]
     Active Substance: DROXIDOPA
     Dosage: DAY 1?2
     Route: 065
  5. NORTHERA [Suspect]
     Active Substance: DROXIDOPA
     Dosage: DAY 9?10
     Route: 065
  6. NORTHERA [Suspect]
     Active Substance: DROXIDOPA
     Dosage: DAY 11 ONWARDS
     Route: 065
  7. NORTHERA [Suspect]
     Active Substance: DROXIDOPA
     Dosage: DAY 1?2
     Route: 065
  8. NORTHERA [Suspect]
     Active Substance: DROXIDOPA
     Dosage: DAY 3?4
     Route: 065
  9. NORTHERA [Suspect]
     Active Substance: DROXIDOPA
     Dosage: DAY 7?8
     Route: 065
  10. NORTHERA [Suspect]
     Active Substance: DROXIDOPA
     Indication: ORTHOSTATIC HYPOTENSION
     Dosage: DAY 1?2
     Route: 065
  11. NORTHERA [Suspect]
     Active Substance: DROXIDOPA
     Dosage: DAY 5?6
     Route: 065
  12. NORTHERA [Suspect]
     Active Substance: DROXIDOPA
     Dosage: DAY 11 ONWARDS
     Route: 065
  13. NORTHERA [Suspect]
     Active Substance: DROXIDOPA
     Dosage: DAY 5?6
     Route: 065
  14. NORTHERA [Suspect]
     Active Substance: DROXIDOPA
     Dosage: DAY 7?8
     Route: 065
  15. NORTHERA [Suspect]
     Active Substance: DROXIDOPA
     Dosage: DAY 9?10
     Route: 065
  16. NORTHERA [Suspect]
     Active Substance: DROXIDOPA
     Dosage: DAY 11 ONWARDS
     Route: 065
  17. NORTHERA [Suspect]
     Active Substance: DROXIDOPA
     Dosage: DAY 3?4
     Route: 065
  18. NORTHERA [Suspect]
     Active Substance: DROXIDOPA
     Dosage: DAY 5?6
     Route: 065

REACTIONS (3)
  - Haemorrhagic stroke [Fatal]
  - Blood pressure increased [Unknown]
  - Ruptured cerebral aneurysm [Unknown]
